FAERS Safety Report 14752672 (Version 1)
Quarter: 2018Q2

REPORT INFORMATION
  Report Type: Spontaneous
  Country: SI (occurrence: SI)
  Receive Date: 20180412
  Receipt Date: 20180412
  Transmission Date: 20180711
  Serious: Yes (Hospitalization)
  Sender: FDA-Public Use
  Company Number: SI-JNJFOC-20180412250

PATIENT
  Sex: Female

DRUGS (2)
  1. RYTMONORM [Concomitant]
     Active Substance: PROPAFENONE
     Route: 065
  2. XARELTO [Suspect]
     Active Substance: RIVAROXABAN
     Indication: ATRIAL FIBRILLATION
     Route: 048

REACTIONS (4)
  - Dizziness [Unknown]
  - Cerebrovascular accident [Unknown]
  - Vomiting [Unknown]
  - Gait inability [Unknown]
